FAERS Safety Report 16078814 (Version 1)
Quarter: 2019Q1

REPORT INFORMATION
  Report Type: Spontaneous
  Country: US (occurrence: US)
  Receive Date: 20190315
  Receipt Date: 20190315
  Transmission Date: 20190418
  Serious: No
  Sender: FDA-Public Use
  Company Number: US-PERRIGO-18US006869

PATIENT
  Age: 35 Year
  Sex: Male
  Weight: 104.31 kg

DRUGS (1)
  1. SCOPOLAMINE [Suspect]
     Active Substance: SCOPOLAMINE
     Indication: ARRHYTHMIA
     Dosage: 1 MG, EVERY 3 DAYS
     Route: 062
     Dates: start: 20180503, end: 20180603

REACTIONS (1)
  - Off label use [Unknown]

NARRATIVE: CASE EVENT DATE: 20180503
